FAERS Safety Report 9507904 (Version 1)
Quarter: 2013Q1

REPORT INFORMATION
  Report Type: Spontaneous
  Country: US (occurrence: None)
  Receive Date: 20130305
  Receipt Date: 20130305
  Transmission Date: 20140127
  Serious: Yes (Other)
  Sender: FDA-Public Use
  Company Number: 163-21880-12021697

PATIENT
  Age: 67 Year
  Sex: Female
  Weight: 53.98 kg

DRUGS (4)
  1. REVLIMID [Suspect]
     Indication: PLASMA CELL MYELOMA
     Dosage: 1 IN 1 D
     Route: 048
     Dates: start: 201103, end: 20120202
  2. ACYCLOVIR (ACICLOVIR) (ACICLOVIR) [Concomitant]
  3. AMLODIPINE/BENAZEPRIL (AMLODIPINE BESYLATE W/ BENAZEPRIL HYDROCHLOR.) [Concomitant]
  4. ASA (ACETYLSALICYLIC ACID) [Concomitant]

REACTIONS (6)
  - Hypertension [None]
  - Headache [None]
  - Abdominal pain upper [None]
  - Abdominal discomfort [None]
  - Confusional state [None]
  - Dizziness [None]
